FAERS Safety Report 4510429-9 (Version None)
Quarter: 2004Q4

REPORT INFORMATION
  Report Type: 
  Country: None (occurrence: None)
  Receive Date: 20041119
  Receipt Date: 20041028
  Transmission Date: 20050328
  Serious: Yes (Hospitalization)
  Sender: FDA-Public Use
  Company Number: US_0411107686

PATIENT
  Age: 66 Year
  Sex: Female

DRUGS (1)
  1. FORTEO [Suspect]
     Indication: OSTEOPOROSIS
     Dosage: 20 UG/1 DAY
     Dates: start: 20031212, end: 20041022

REACTIONS (4)
  - NOSOCOMIAL INFECTION [None]
  - PAIN [None]
  - SPINAL OPERATION [None]
  - SUTURE RELATED COMPLICATION [None]
